FAERS Safety Report 4785904-2 (Version None)
Quarter: 2005Q3

REPORT INFORMATION
  Report Type: 
  Country: None (occurrence: None)
  Receive Date: 20050930
  Receipt Date: 20050921
  Transmission Date: 20060218
  Serious: Yes (Hospitalization, Other)
  Sender: FDA-Public Use
  Company Number: 2005JP000332

PATIENT
  Age: 51 Year
  Sex: Female
  Weight: 35.5 kg

DRUGS (3)
  1. PROGRAF [Suspect]
     Indication: RENAL TRANSPLANT
     Dates: start: 20031201
  2. MYCOPHENOLATE MOFETIL (MYCOPHENOLATE MOFETIL) CAPSULE [Concomitant]
  3. METHYLPREDNISOLONE [Concomitant]

REACTIONS (14)
  - BACK PAIN [None]
  - CANDIDIASIS [None]
  - COMPLICATIONS OF TRANSPLANTED KIDNEY [None]
  - HAEMODIALYSIS [None]
  - HYPOPERFUSION [None]
  - KIDNEY ENLARGEMENT [None]
  - KIDNEY TRANSPLANT REJECTION [None]
  - LIVER DISORDER [None]
  - POSTRENAL FAILURE [None]
  - PYONEPHROSIS [None]
  - PYREXIA [None]
  - RENAL DISORDER [None]
  - RENAL TUBULAR NECROSIS [None]
  - URETERIC STENOSIS [None]
